FAERS Safety Report 15207880 (Version 1)
Quarter: 2018Q3

REPORT INFORMATION
  Report Type: Spontaneous
  Country: ZA (occurrence: ZA)
  Receive Date: 20180727
  Receipt Date: 20180727
  Transmission Date: 20181010
  Serious: Yes (Other)
  Sender: FDA-Public Use
  Company Number: ZA-PFIZER INC-2018300523

PATIENT
  Age: 82 Year
  Sex: Male

DRUGS (5)
  1. ASPAVOR [Suspect]
     Active Substance: ATORVASTATIN
     Dosage: 20 MG, UNK
  2. ZARTAN CO [Suspect]
     Active Substance: HYDROCHLOROTHIAZIDE\LOSARTAN POTASSIUM
     Dosage: 100/25 MG
  3. BAYER ASPIRIN CARDIO [Suspect]
     Active Substance: ASPIRIN
     Dosage: 100 MG, UNK
  4. ADCO?ATENOLOL [Suspect]
     Active Substance: ATENOLOL
     Dosage: 50 MG, UNK
  5. FEDALOC [Suspect]
     Active Substance: NIFEDIPINE
     Dosage: 30 MG, UNK

REACTIONS (1)
  - Deafness [Unknown]
